FAERS Safety Report 19963609 (Version 1)
Quarter: 2021Q4

REPORT INFORMATION
  Report Type: Spontaneous
  Country: US (occurrence: US)
  Receive Date: 20211014
  Receipt Date: 20211014
  Transmission Date: 20220304
  Serious: No
  Sender: FDA-Public Use
  Company Number: None

PATIENT
  Age: 49 Year
  Sex: Female

DRUGS (1)
  1. HUMIRA [Suspect]
     Active Substance: ADALIMUMAB
     Dosage: ?          OTHER DOSE:PEN;OTHER FREQUENCY:OTHER;
     Route: 058

REACTIONS (3)
  - Product distribution issue [None]
  - Drug dispensed to wrong patient [None]
  - Product dose omission issue [None]

NARRATIVE: CASE EVENT DATE: 20211014
